FAERS Safety Report 7683095-1 (Version None)
Quarter: 2011Q3

REPORT INFORMATION
  Report Type: 
  Country: None (occurrence: None)
  Receive Date: 20110815
  Receipt Date: 20110802
  Transmission Date: 20111222
  Serious: Yes (Hospitalization, Other)
  Sender: FDA-Public Use
  Company Number: CA-ELI_LILLY_AND_COMPANY-CA201108000721

PATIENT
  Sex: Male

DRUGS (13)
  1. ZYPREXA [Suspect]
     Indication: BIPOLAR DISORDER
     Dosage: 5 MG, QD
  2. ZYPREXA [Suspect]
     Dosage: 2.5 MG, QD
  3. ZYPREXA [Suspect]
     Dosage: 10 MG, QD
  4. LOXAPINE HCL [Concomitant]
  5. ZOPICLONE [Concomitant]
  6. ZYPREXA [Suspect]
     Dosage: 15 MG, QD
  7. SEROQUEL [Concomitant]
  8. CLONAZEPAM [Concomitant]
  9. ZYPREXA ZYDIS [Suspect]
     Indication: BIPOLAR DISORDER
     Dosage: 5 MG, EACH EVENING
  10. CIALIS [Concomitant]
  11. OXAZEPAM [Concomitant]
  12. ZYPREXA [Suspect]
     Dosage: 7.5 MG, QD
  13. WELLBUTRIN XL [Concomitant]

REACTIONS (10)
  - MYOCARDIAL INFARCTION [None]
  - ARTERIOSCLEROSIS [None]
  - DIABETES MELLITUS [None]
  - GASTRITIS [None]
  - VERTEBRAL ARTERY THROMBOSIS [None]
  - HYPOAESTHESIA [None]
  - ILIAC ARTERY STENOSIS [None]
  - CEREBROVASCULAR ACCIDENT [None]
  - HYPERTENSION [None]
  - RENAL FAILURE [None]
